FAERS Safety Report 5156688-3 (Version None)
Quarter: 2006Q4

REPORT INFORMATION
  Report Type: 
  Country: None (occurrence: None)
  Receive Date: 20061115
  Receipt Date: 20061103
  Transmission Date: 20070319
  Serious: Yes (Other)
  Sender: FDA-Public Use
  Company Number: SPV1-2006-01532

PATIENT
  Age: 66 Year
  Sex: Female
  Weight: 53 kg

DRUGS (6)
  1. XAGRID [Suspect]
     Indication: MYELOPROLIFERATIVE DISORDER
     Dosage: SEE IMAGE, ORAL
     Route: 048
     Dates: start: 20060508, end: 20060622
  2. XAGRID [Suspect]
     Indication: MYELOPROLIFERATIVE DISORDER
     Dosage: SEE IMAGE, ORAL
     Route: 048
     Dates: start: 20060626, end: 20060704
  3. XAGRID [Suspect]
     Indication: MYELOPROLIFERATIVE DISORDER
     Dosage: SEE IMAGE, ORAL
     Route: 048
     Dates: start: 20060704, end: 20060711
  4. ASPIRIN [Suspect]
     Dosage: 100 MG, 1X/DAY:QD
     Dates: start: 20060301, end: 20060622
  5. FLUOXETINE HCL [Concomitant]
  6. HYDROXYCARBAMID (HYDROXYCARBAMIDE) [Concomitant]

REACTIONS (1)
  - MALLORY-WEISS SYNDROME [None]
